FAERS Safety Report 5605306-6 (Version None)
Quarter: 2008Q1

REPORT INFORMATION
  Report Type: 
  Country: None (occurrence: None)
  Receive Date: 20080129
  Receipt Date: 20080116
  Transmission Date: 20080703
  Serious: Yes (Life-Threatening, Other)
  Sender: FDA-Public Use
  Company Number: US-PFIZER INC-2008004848

PATIENT
  Sex: Female

DRUGS (1)
  1. DOXAZOSIN [Suspect]

REACTIONS (5)
  - BLOOD PRESSURE INADEQUATELY CONTROLLED [None]
  - COLON CANCER [None]
  - DIVERTICULITIS [None]
  - UNEVALUABLE EVENT [None]
  - WEIGHT DECREASED [None]
